FAERS Safety Report 4281781-7 (Version None)
Quarter: 2004Q1

REPORT INFORMATION
  Report Type: 
  Country: None (occurrence: None)
  Receive Date: 20040129
  Receipt Date: 20040129
  Transmission Date: 20041129
  Serious: Yes (Hospitalization)
  Sender: FDA-Public Use
  Company Number: None

PATIENT
  Sex: Female

DRUGS (1)
  1. GEMCITABINE 675 MG/M2 [Suspect]
     Indication: UTERINE LEIOMYOSARCOMA
     Dosage: DOSE UNK, IV
     Route: 042
     Dates: start: 20040116

REACTIONS (7)
  - ABDOMINAL PAIN [None]
  - BACK PAIN [None]
  - CONDITION AGGRAVATED [None]
  - HAEMATOCHEZIA [None]
  - NAUSEA [None]
  - PALLOR [None]
  - VOMITING [None]
